FAERS Safety Report 4280399-X (Version None)
Quarter: 2004Q1

REPORT INFORMATION
  Report Type: 
  Country: None (occurrence: None)
  Receive Date: 20040126
  Receipt Date: 20040114
  Transmission Date: 20041129
  Serious: Yes (Hospitalization)
  Sender: FDA-Public Use
  Company Number: NSADSS2002006109

PATIENT
  Age: 56 Year
  Sex: Male

DRUGS (9)
  1. REMICADE [Suspect]
     Indication: ANKYLOSING SPONDYLITIS
     Dosage: SEE IMAGE
     Route: 041
     Dates: start: 20011002, end: 20011002
  2. REMICADE [Suspect]
     Indication: ANKYLOSING SPONDYLITIS
     Dosage: SEE IMAGE
     Route: 041
     Dates: start: 20011018, end: 20011018
  3. REMICADE [Suspect]
     Indication: ANKYLOSING SPONDYLITIS
     Dosage: SEE IMAGE
     Route: 041
     Dates: start: 20011119, end: 20011119
  4. REMICADE [Suspect]
     Indication: ANKYLOSING SPONDYLITIS
     Dosage: SEE IMAGE
     Route: 041
     Dates: start: 20020122, end: 20020122
  5. METHOTREXATE [Suspect]
     Indication: ANKYLOSING SPONDYLITIS
     Dosage: 15 MG, 1 IN 1 WEEK, SUBCUTANEOSU
     Route: 058
     Dates: end: 20030401
  6. PREDNISONE [Suspect]
     Indication: ANKYLOSING SPONDYLITIS
     Dosage: 7.5 MG , ORAL
     Route: 048
     Dates: end: 20020220
  7. ETANERCEPT (ETANERCEPT) [Suspect]
     Indication: ANKYLOSING SPONDYLITIS
  8. INDOMETHACIN [Concomitant]
  9. FOLIC ACID [Concomitant]

REACTIONS (5)
  - BRONCHOPULMONARY ASPERGILLOSIS [None]
  - LYMPHOPENIA [None]
  - MYCETOMA MYCOTIC [None]
  - PNEUMONIA NECROTISING [None]
  - PULMONARY TUBERCULOSIS [None]
